FAERS Safety Report 9089462 (Version 1)
Quarter: 2013Q1

REPORT INFORMATION
  Report Type: Report from Study
  Country: US (occurrence: US)
  Receive Date: 20130130
  Receipt Date: 20130130
  Transmission Date: 20140127
  Serious: No
  Sender: FDA-Public Use
  Company Number: US-ABBOTT-12P-163-0967953-00

PATIENT
  Age: 73 Year
  Sex: Female

DRUGS (10)
  1. HUMIRA 40 MG/0.8 ML PEN [Suspect]
     Indication: CROHN^S DISEASE
     Dates: start: 20120716
  2. ALLOPURINOL [Concomitant]
     Indication: GOUT
  3. METOPROLOL [Concomitant]
     Indication: BLOOD PRESSURE
  4. LAMOTRIGIN [Concomitant]
     Indication: CEREBROVASCULAR ACCIDENT PROPHYLAXIS
  5. DIGOXIN [Concomitant]
     Indication: CARDIOVASCULAR EVENT PROPHYLAXIS
  6. FUROSEMIDE [Concomitant]
     Indication: DIURETIC THERAPY
  7. LEVOTHYROXIN [Concomitant]
     Indication: HYPOTHYROIDISM
  8. WARFARIN [Concomitant]
     Indication: CARDIAC DISORDER
  9. BRIMONIDINE [Concomitant]
     Indication: CATARACT OPERATION
     Route: 047
  10. ASA [Concomitant]
     Indication: PROPHYLAXIS

REACTIONS (1)
  - Drug ineffective [Not Recovered/Not Resolved]
